FAERS Safety Report 22127081 (Version 4)
Quarter: 2023Q2

REPORT INFORMATION
  Report Type: Spontaneous
  Country: TR (occurrence: TR)
  Receive Date: 20230322
  Receipt Date: 20230526
  Transmission Date: 20230722
  Serious: Yes (Life-Threatening, Hospitalization, Other)
  Sender: FDA-Public Use
  Company Number: TR-009507513-2303TUR007070

PATIENT
  Age: 56 Year
  Sex: Male

DRUGS (1)
  1. JANUVIA [Suspect]
     Active Substance: SITAGLIPTIN PHOSPHATE
     Dosage: 100 MILLIGRAM, BID
     Route: 048

REACTIONS (11)
  - Foreign body in throat [Unknown]
  - Foreign body aspiration [Unknown]
  - Dysphagia [Unknown]
  - Hospitalisation [Unknown]
  - Mental disorder [Unknown]
  - Vomiting [Unknown]
  - Nervousness [Unknown]
  - Depressed mood [Unknown]
  - Manufacturing issue [Unknown]
  - Wrong technique in product usage process [Unknown]
  - Incorrect dose administered [Unknown]

NARRATIVE: CASE EVENT DATE: 20230301
